FAERS Safety Report 9664891 (Version 1)
Quarter: 2013Q4

REPORT INFORMATION
  Report Type: Spontaneous
  Country: FR (occurrence: FR)
  Receive Date: 20131101
  Receipt Date: 20131101
  Transmission Date: 20140711
  Serious: Yes (Hospitalization, Congenital Anomaly)
  Sender: FDA-Public Use
  Company Number: FR-VIIV HEALTHCARE LIMITED-B0935529A

PATIENT
  Age: 0 Year
  Sex: Female
  Weight: 3.1 kg

DRUGS (6)
  1. COMBIVIR [Suspect]
     Indication: HIV INFECTION
     Dosage: 2TAB PER DAY
     Route: 064
     Dates: start: 2002
  2. VIRAMUNE [Suspect]
     Indication: HIV INFECTION
     Dosage: 400MG PER DAY
     Route: 064
     Dates: start: 2002
  3. XANAX [Suspect]
     Indication: PRODUCT USED FOR UNKNOWN INDICATION
     Dosage: .25MG PER DAY
     Route: 064
     Dates: start: 2010, end: 201011
  4. TARDYFERON B9 [Concomitant]
     Indication: PRODUCT USED FOR UNKNOWN INDICATION
     Dosage: 1TAB PER DAY
     Route: 064
     Dates: start: 2010, end: 201011
  5. UVEDOSE [Concomitant]
     Indication: PRODUCT USED FOR UNKNOWN INDICATION
     Route: 064
     Dates: start: 2010, end: 2010
  6. RETROVIR [Concomitant]
     Indication: PROPHYLAXIS AGAINST HIV INFECTION
     Dosage: 25MG FOUR TIMES PER DAY
     Route: 064
     Dates: start: 20101108

REACTIONS (9)
  - Pulmonary artery atresia [Unknown]
  - Atrial septal defect [Unknown]
  - Cardiac murmur [Unknown]
  - Cyanosis [Unknown]
  - Cardiac disorder [Unknown]
  - Respiratory failure [Unknown]
  - Patent ductus arteriosus [Unknown]
  - Tricuspid valve incompetence [Unknown]
  - Foetal exposure during pregnancy [Unknown]
